FAERS Safety Report 6913602-5 (Version None)
Quarter: 2010Q3

REPORT INFORMATION
  Report Type: 
  Country: None (occurrence: None)
  Receive Date: 20100809
  Receipt Date: 20100728
  Transmission Date: 20110219
  Serious: Yes (Hospitalization)
  Sender: FDA-Public Use
  Company Number: CH-SANOFI-AVENTIS-2010SA044691

PATIENT
  Sex: Male

DRUGS (4)
  1. ELOXATIN [Suspect]
     Route: 042
     Dates: start: 20100101
  2. TILUR [Suspect]
     Route: 048
     Dates: start: 20100601, end: 20100601
  3. EPIRUBICIN [Suspect]
     Route: 042
     Dates: start: 20100101
  4. CAPECITABINE [Suspect]
     Dates: start: 20100101

REACTIONS (1)
  - NEPHROTIC SYNDROME [None]
